FAERS Safety Report 5657514-6 (Version None)
Quarter: 2008Q1

REPORT INFORMATION
  Report Type: 
  Country: None (occurrence: None)
  Receive Date: 20080307
  Receipt Date: 20080307
  Transmission Date: 20080703
  Serious: Yes (Other)
  Sender: FDA-Public Use
  Company Number: None

PATIENT
  Age: 65 Year
  Sex: Female
  Weight: 98 kg

DRUGS (2)
  1. TEMSIROLIMUS 25MG [Suspect]
     Indication: OVARIAN CANCER
     Dosage: WEEKLY IV DRIP
     Route: 041
     Dates: start: 20080220, end: 20080220
  2. TOPOTECAN 1MG GLAXOSMITHKLINE [Suspect]
     Dosage: WEEKLY IV DRIP
     Route: 041
     Dates: start: 20080227, end: 20080227

REACTIONS (2)
  - EPISTAXIS [None]
  - THROMBOCYTOPENIA [None]
